FAERS Safety Report 14772708 (Version 5)
Quarter: 2018Q3

REPORT INFORMATION
  Report Type: Spontaneous
  Country: US (occurrence: US)
  Receive Date: 20180418
  Receipt Date: 20180830
  Transmission Date: 20181010
  Serious: Yes (Hospitalization, Other)
  Sender: FDA-Public Use
  Company Number: US-BRISTOL-MYERS SQUIBB COMPANY-BMS-2018-035702

PATIENT
  Sex: Female
  Weight: 112.2 kg

DRUGS (2)
  1. ORENCIA [Suspect]
     Active Substance: ABATACEPT
     Indication: POLYARTHRITIS
     Route: 065
  2. ORENCIA [Suspect]
     Active Substance: ABATACEPT
     Indication: RHEUMATOID ARTHRITIS
     Dosage: 125 MG, QWK
     Route: 058
     Dates: start: 201802

REACTIONS (6)
  - Urinary tract infection [Unknown]
  - Fall [Unknown]
  - Pelvic fracture [Unknown]
  - Hypertension [Unknown]
  - Drug dose omission [Unknown]
  - Dizziness [Unknown]
